FAERS Safety Report 5710330-9 (Version None)
Quarter: 2008Q2

REPORT INFORMATION
  Report Type: 
  Country: None (occurrence: None)
  Receive Date: 20080418
  Receipt Date: 20080408
  Transmission Date: 20081010
  Serious: Yes (Other)
  Sender: FDA-Public Use
  Company Number: CA-PFIZER INC-2008030890

PATIENT
  Age: 64 Year
  Sex: Female

DRUGS (15)
  1. PREGABALIN [Suspect]
     Indication: FACIAL PAIN
  2. TERIPARATIDE [Concomitant]
     Indication: OSTEOPOROSIS
     Route: 058
  3. PREDNISONE [Concomitant]
  4. ENTROPHEN [Concomitant]
  5. MIRAPEX [Concomitant]
  6. CALCIUM [Concomitant]
  7. VITAMIN D [Concomitant]
  8. MAGNESIUM [Concomitant]
  9. VITALUX [Concomitant]
  10. VITAMIN B COMPLEX CAP [Concomitant]
  11. GEMFIBROZIL [Concomitant]
  12. SIBELIUM [Concomitant]
  13. DOXEPIN HCL [Concomitant]
  14. FLONASE [Concomitant]
  15. PARIET [Concomitant]

REACTIONS (5)
  - BONE DENSITY DECREASED [None]
  - JOINT CREPITATION [None]
  - MIGRAINE [None]
  - PELVIC FRACTURE [None]
  - PELVIC PAIN [None]
